FAERS Safety Report 6187901-1 (Version None)
Quarter: 2009Q2

REPORT INFORMATION
  Report Type: 
  Country: None (occurrence: None)
  Receive Date: 20090511
  Receipt Date: 20090511
  Transmission Date: 20091009
  Serious: Yes (Death)
  Sender: FDA-Public Use
  Company Number: None

PATIENT
  Sex: Male

DRUGS (11)
  1. REVLIMID [Suspect]
     Indication: MULTIPLE MYELOMA
     Dosage: 20MG DAILY X 21DAYS PO
     Route: 048
     Dates: start: 20080401
  2. REVLIMID [Suspect]
     Indication: MULTIPLE MYELOMA
     Dosage: 20MG DAILY X 21DAYS PO
     Route: 048
     Dates: start: 20081001
  3. DIGOXIN [Concomitant]
  4. LEVOTHROID [Concomitant]
  5. METOPROLOL [Concomitant]
  6. HYDROCODONE BITARTRATE + ACETAMINOPHEN [Concomitant]
  7. FERROUS SULFATE TAB [Concomitant]
  8. MV [Concomitant]
  9. KLOR-CON [Concomitant]
  10. ASCORBIC ACID [Concomitant]
  11. OXYCODONE HCL AND ACETAMINOPHEN [Concomitant]

REACTIONS (12)
  - ARTERIAL STENOSIS [None]
  - ATRIAL FIBRILLATION [None]
  - CARDIAC FAILURE CONGESTIVE [None]
  - CARDIOPULMONARY FAILURE [None]
  - CHOLECYSTITIS INFECTIVE [None]
  - CHRONIC OBSTRUCTIVE PULMONARY DISEASE [None]
  - COLON CANCER [None]
  - DISEASE PROGRESSION [None]
  - HEPATIC NEOPLASM MALIGNANT [None]
  - METASTASES TO BONE [None]
  - METASTASES TO LUNG [None]
  - VENOUS STENOSIS [None]
